FAERS Safety Report 5802832-1 (Version None)
Quarter: 2008Q3

REPORT INFORMATION
  Report Type: 
  Country: None (occurrence: None)
  Receive Date: 20080708
  Receipt Date: 20080627
  Transmission Date: 20090109
  Serious: Yes (Other)
  Sender: FDA-Public Use
  Company Number: FR-BAXTER-2008BH006956

PATIENT
  Sex: Female

DRUGS (1)
  1. SUPRANE [Suspect]
     Indication: ANAESTHESIA
     Dosage: DOSE UNIT:UNKNOWN
     Route: 055
     Dates: start: 20080529, end: 20080529

REACTIONS (2)
  - MEDICAL DEVICE COMPLICATION [None]
  - OXYGEN SATURATION DECREASED [None]
